FAERS Safety Report 11119495 (Version 1)
Quarter: 2015Q2

REPORT INFORMATION
  Report Type: Spontaneous
  Country: US (occurrence: None)
  Receive Date: 20150515
  Receipt Date: 20150515
  Transmission Date: 20150821
  Serious: Yes (Other)
  Sender: FDA-Public Use
  Company Number: None

PATIENT
  Age: 66 Year
  Sex: Male

DRUGS (1)
  1. AFINITOR [Suspect]
     Active Substance: EVEROLIMUS
     Indication: RENAL CANCER
     Dosage: 10MG, 1 DAILY, ORAL
     Route: 048
     Dates: start: 20150324, end: 20150513

REACTIONS (4)
  - Metastases to bone [None]
  - Cough [None]
  - Dyspnoea [None]
  - Metastases to lung [None]

NARRATIVE: CASE EVENT DATE: 20150513
